FAERS Safety Report 4343072-5 (Version None)
Quarter: 2004Q2

REPORT INFORMATION
  Report Type: 
  Country: None (occurrence: None)
  Receive Date: 20040421
  Receipt Date: 20040413
  Transmission Date: 20050107
  Serious: Yes (Life-Threatening, Hospitalization)
  Sender: FDA-Public Use
  Company Number: FR-BRISTOL-MYERS SQUIBB COMPANY-12561791

PATIENT
  Age: 74 Year
  Sex: Male

DRUGS (7)
  1. GLUCOPHAGE [Suspect]
     Indication: DIABETES MELLITUS
     Route: 048
  2. IODINIZED CONTRAST MEDIA [Interacting]
     Indication: CORONARY ARTERY ATHEROSCLEROSIS
     Route: 042
     Dates: start: 20040218, end: 20040218
  3. LOVENOX [Interacting]
     Indication: PROPHYLACTIC CHEMOTHERAPY
     Route: 058
     Dates: start: 20040219, end: 20040229
  4. LASIX [Interacting]
     Indication: CARDIAC DISORDER
     Route: 048
  5. TRIATEC [Interacting]
     Indication: CARDIAC DISORDER
     Route: 048
  6. CORDARONE [Concomitant]
     Indication: CARDIAC DISORDER
     Route: 048
  7. DIAMICRON [Concomitant]

REACTIONS (4)
  - DRUG INTERACTION [None]
  - HAEMODIALYSIS [None]
  - HYPERKALAEMIA [None]
  - RENAL FAILURE ACUTE [None]
